FAERS Safety Report 22090222 (Version 2)
Quarter: 2023Q2

REPORT INFORMATION
  Report Type: Spontaneous
  Country: US (occurrence: None)
  Receive Date: 20230313
  Receipt Date: 20230406
  Transmission Date: 20230721
  Serious: No
  Sender: FDA-Public Use
  Company Number: 2023A056015

PATIENT
  Age: 60 Year
  Sex: Female

DRUGS (1)
  1. PULMICORT FLEXHALER [Suspect]
     Active Substance: BUDESONIDE
     Indication: Upper respiratory tract infection
     Dosage: VIA INHALATION, 1 PUFF 2 TIMES A DAY,
     Route: 055
     Dates: start: 20230223, end: 20230225

REACTIONS (10)
  - Cough [Not Recovered/Not Resolved]
  - Respiratory tract inflammation [Unknown]
  - Pharyngitis [Unknown]
  - Device use issue [Unknown]
  - Wrong technique in device usage process [Unknown]
  - Incorrect dose administered by device [Unknown]
  - Drug ineffective [Unknown]
  - Off label use [Unknown]
  - Intentional product misuse [Unknown]
  - Device delivery system issue [Unknown]
